FAERS Safety Report 5987012-1 (Version None)
Quarter: 2008Q4

REPORT INFORMATION
  Report Type: 
  Country: None (occurrence: None)
  Receive Date: 20081209
  Receipt Date: 20081202
  Transmission Date: 20090506
  Serious: Yes (Life-Threatening, Hospitalization)
  Sender: FDA-Public Use
  Company Number: B0543652A

PATIENT
  Age: 23 Year
  Sex: Male
  Weight: 79 kg

DRUGS (1)
  1. MALARONE [Suspect]
     Indication: MALARIA PROPHYLAXIS
     Dosage: 1TAB PER DAY
     Route: 048
     Dates: start: 20080101, end: 20080101

REACTIONS (3)
  - DRUG INEFFECTIVE [None]
  - DRUG RESISTANCE [None]
  - PLASMODIUM FALCIPARUM INFECTION [None]
